FAERS Safety Report 24865327 (Version 2)
Quarter: 2025Q1

REPORT INFORMATION
  Report Type: Report from Study
  Country: CA (occurrence: CA)
  Receive Date: 20250121
  Receipt Date: 20250202
  Transmission Date: 20250409
  Serious: Yes (Other)
  Sender: TAKEDA
  Company Number: CA-TAKEDA-2024TUS111514

PATIENT
  Age: 78 Year
  Sex: Male

DRUGS (6)
  1. VEDOLIZUMAB [Suspect]
     Active Substance: VEDOLIZUMAB
     Indication: Colitis ulcerative
  2. VEDOLIZUMAB [Suspect]
     Active Substance: VEDOLIZUMAB
     Dosage: 300 MILLIGRAM, Q4WEEKS
     Dates: start: 20241122
  3. VEDOLIZUMAB [Suspect]
     Active Substance: VEDOLIZUMAB
     Dosage: 300 MILLIGRAM, Q4WEEKS
     Dates: end: 20250113
  4. ASPIRIN [Concomitant]
     Active Substance: ASPIRIN
  5. PREDNISONE [Concomitant]
     Active Substance: PREDNISONE
  6. Cortiment [Concomitant]

REACTIONS (7)
  - Rectal haemorrhage [Not Recovered/Not Resolved]
  - Diarrhoea [Unknown]
  - Red blood cell count decreased [Unknown]
  - Serum ferritin decreased [Unknown]
  - Defaecation urgency [Not Recovered/Not Resolved]
  - Therapy non-responder [Unknown]
  - Off label use [Unknown]

NARRATIVE: CASE EVENT DATE: 20241122
